FAERS Safety Report 12852682 (Version 1)
Quarter: 2016Q4

REPORT INFORMATION
  Report Type: Spontaneous
  Country: US (occurrence: US)
  Receive Date: 20161014
  Receipt Date: 20161014
  Transmission Date: 20170207
  Serious: No
  Sender: FDA-Public Use
  Company Number: None

PATIENT
  Age: 59 Year
  Sex: Male

DRUGS (1)
  1. RIBAVIRIN TAB 200MG [Suspect]
     Active Substance: RIBAVIRIN
     Indication: CHRONIC HEPATITIS C
     Dosage: RIBAVIRIN 200 MG - PO - 3 IN AM AND 2
     Route: 048
     Dates: start: 20160901

REACTIONS (1)
  - Chromaturia [None]

NARRATIVE: CASE EVENT DATE: 20161014
